FAERS Safety Report 8225598-7 (Version None)
Quarter: 2012Q1

REPORT INFORMATION
  Report Type: 
  Country: None (occurrence: None)
  Receive Date: 20120321
  Receipt Date: 20120314
  Transmission Date: 20120608
  Serious: Yes (Hospitalization)
  Sender: FDA-Public Use
  Company Number: CA-JNJFOC-20120306687

PATIENT
  Sex: Male
  Weight: 99 kg

DRUGS (3)
  1. ZANTAC [Concomitant]
     Route: 065
  2. REMICADE [Suspect]
     Dosage: START DATE: MAY-^20(PLUS)^
     Route: 042
  3. REMICADE [Suspect]
     Indication: COLITIS ULCERATIVE
     Route: 042
     Dates: start: 20120109, end: 20120109

REACTIONS (3)
  - COLECTOMY [None]
  - DRUG INEFFECTIVE [None]
  - RESECTION OF RECTUM [None]
